FAERS Safety Report 24624764 (Version 1)
Quarter: 2024Q4

REPORT INFORMATION
  Report Type: Spontaneous
  Country: US (occurrence: US)
  Receive Date: 20241115
  Receipt Date: 20241115
  Transmission Date: 20250115
  Serious: Yes (Disabling, Other)
  Sender: REGENERON
  Company Number: US-REGENERON PHARMACEUTICALS, INC.-2024-153811

PATIENT
  Age: 70 Year
  Sex: Female

DRUGS (2)
  1. EYLEA [Suspect]
     Active Substance: AFLIBERCEPT
     Indication: Neovascular age-related macular degeneration
     Dosage: 2 MG OD (RIGHT EYE), FORMULATION: PRE-FILLED SYRINGE (GERRESHEIMER)
     Dates: start: 20241105
  2. AVASTIN [Concomitant]
     Active Substance: BEVACIZUMAB
     Indication: Product used for unknown indication
     Dosage: UNK; IN THE LEFT EYE (OS)

REACTIONS (2)
  - Blindness unilateral [Not Recovered/Not Resolved]
  - Endophthalmitis [Unknown]

NARRATIVE: CASE EVENT DATE: 20241101
